FAERS Safety Report 5005992-8 (Version None)
Quarter: 2006Q2

REPORT INFORMATION
  Report Type: 
  Country: None (occurrence: None)
  Receive Date: 20060517
  Receipt Date: 20060517
  Transmission Date: 20061013
  Serious: Yes (Hospitalization)
  Sender: FDA-Public Use
  Company Number: None

PATIENT
  Age: 81 Year
  Sex: Male
  Weight: 96.6162 kg

DRUGS (1)
  1. BENAZAPRIL    40MG [Suspect]
     Indication: HYPERTENSION
     Dosage: 40MG  DAILY  PO
     Route: 048
     Dates: start: 20050606, end: 20051004

REACTIONS (1)
  - ANGIONEUROTIC OEDEMA [None]
